FAERS Safety Report 5712161-2 (Version None)
Quarter: 2008Q2

REPORT INFORMATION
  Report Type: 
  Country: None (occurrence: None)
  Receive Date: 20080421
  Receipt Date: 20080421
  Transmission Date: 20081010
  Serious: Yes (Other)
  Sender: FDA-Public Use
  Company Number: None

PATIENT
  Sex: Male

DRUGS (1)
  1. TERBINAFINE HCL [Suspect]
     Indication: ONYCHOMYCOSIS
     Dosage: 250 MG 1 QD ORAL
     Route: 048

REACTIONS (2)
  - THERAPEUTIC RESPONSE DECREASED [None]
  - THERAPEUTIC RESPONSE UNEXPECTED WITH DRUG SUBSTITUTION [None]
